FAERS Safety Report 4924239-1 (Version None)
Quarter: 2006Q1

REPORT INFORMATION
  Report Type: 
  Country: None (occurrence: None)
  Receive Date: 20060227
  Receipt Date: 20051230
  Transmission Date: 20060701
  Serious: No
  Sender: FDA-Public Use
  Company Number: US-GLAXOSMITHKLINE-A0587324A

PATIENT
  Age: 35 Year
  Sex: Female

DRUGS (3)
  1. WELLBUTRIN XL [Suspect]
     Indication: DEPRESSION
     Dosage: 300MG IN THE MORNING
     Route: 048
  2. ZOLOFT [Concomitant]
  3. MULTI-VITAMIN [Concomitant]

REACTIONS (1)
  - MYALGIA [None]
